FAERS Safety Report 13777419 (Version 6)
Quarter: 2018Q1

REPORT INFORMATION
  Report Type: Spontaneous
  Country: JP (occurrence: JP)
  Receive Date: 20170721
  Receipt Date: 20180307
  Transmission Date: 20180508
  Serious: Yes (Death, Hospitalization, Other)
  Sender: FDA-Public Use
  Company Number: JP-009507513-1707JPN000505J

PATIENT
  Age: 63 Year
  Sex: Male
  Weight: 52 kg

DRUGS (15)
  1. SEKICODE [Concomitant]
     Dosage: 3.0 ML, QD
     Route: 048
     Dates: start: 20170512
  2. NEXIUM [Concomitant]
     Active Substance: ESOMEPRAZOLE MAGNESIUM
     Indication: PROPHYLAXIS
     Dosage: 20 MG, QD
     Route: 048
     Dates: start: 20170510
  3. ZOLPIDEM TARTRATE. [Concomitant]
     Active Substance: ZOLPIDEM TARTRATE
     Indication: INSOMNIA
     Dosage: 5.0 MG, QD
     Route: 048
     Dates: start: 20170516
  4. LOXOPROFEN [Concomitant]
     Active Substance: LOXOPROFEN
     Dosage: 60.0 MG, BID
     Route: 048
     Dates: start: 20170510
  5. RESTAMIN [Concomitant]
     Active Substance: DIPHENHYDRAMINE
     Indication: PROPHYLAXIS
     Dosage: 50.0 MG, QD
     Route: 048
     Dates: start: 20170510, end: 20170510
  6. NOVORAPID [Concomitant]
     Active Substance: INSULIN ASPART
     Dosage: 5.0 DF, TID
     Route: 058
  7. KEYTRUDA [Suspect]
     Active Substance: PEMBROLIZUMAB
     Indication: NON-SMALL CELL LUNG CANCER
     Dosage: 200 MG, Q3W
     Route: 041
     Dates: start: 20170510
  8. MS CONTIN [Suspect]
     Active Substance: MORPHINE SULFATE
     Indication: NON-SMALL CELL LUNG CANCER
     Dosage: 10.0 MG, BID
     Route: 048
     Dates: start: 20170620
  9. LULICON:CREAM [Concomitant]
     Dosage: UNK
     Route: 062
     Dates: start: 20170510
  10. RELVAR [Concomitant]
     Active Substance: FLUTICASONE FUROATE\VILANTEROL TRIFENATATE
     Dosage: 100 MICROGRAM, QD
     Route: 055
     Dates: start: 20170512
  11. SPIRIVA [Concomitant]
     Active Substance: TIOTROPIUM BROMIDE MONOHYDRATE
     Dosage: 2.5 MICROGRAM, BID
     Route: 055
     Dates: start: 20170512
  12. OPSO [Suspect]
     Active Substance: MORPHINE HYDROCHLORIDE
     Indication: NON-SMALL CELL LUNG CANCER
     Dosage: 5.0 MG, QD
     Route: 048
     Dates: start: 20170529
  13. SOL-MELCORT [Concomitant]
     Active Substance: METHYLPREDNISOLONE SODIUM SUCCINATE
     Indication: CHRONIC OBSTRUCTIVE PULMONARY DISEASE
     Dosage: 40.0 MG, QD
     Route: 041
     Dates: start: 20170529, end: 20170529
  14. PREDONINE [Concomitant]
     Active Substance: PREDNISOLONE
     Indication: CHRONIC OBSTRUCTIVE PULMONARY DISEASE
     Dosage: 30.0 MG, QD
     Route: 048
     Dates: start: 20170530, end: 20170602
  15. CALONAL [Concomitant]
     Active Substance: ACETAMINOPHEN
     Indication: PROPHYLAXIS
     Dosage: 400 MG, QD
     Route: 048
     Dates: start: 20170510, end: 20170510

REACTIONS (8)
  - Malignant neoplasm progression [Fatal]
  - Stomatitis [Not Recovered/Not Resolved]
  - Constipation [Not Recovered/Not Resolved]
  - Chronic obstructive pulmonary disease [Recovered/Resolved]
  - Insomnia [Not Recovered/Not Resolved]
  - Aspartate aminotransferase increased [Recovered/Resolved]
  - Chronic obstructive pulmonary disease [Recovered/Resolved]
  - Alanine aminotransferase increased [Recovering/Resolving]

NARRATIVE: CASE EVENT DATE: 20170516
